FAERS Safety Report 8049048-9 (Version None)
Quarter: 2012Q1

REPORT INFORMATION
  Report Type: 
  Country: None (occurrence: None)
  Receive Date: 20120117
  Receipt Date: 20100816
  Transmission Date: 20120608
  Serious: No
  Sender: FDA-Public Use
  Company Number: US-PFIZER INC-US-WYE-H16954710

PATIENT
  Age: 67 Year
  Sex: Female

DRUGS (1)
  1. ALAVERT [Suspect]
     Indication: ARTHROPOD STING
     Dosage: 1 DF, 1X/DAY
     Route: 048
     Dates: start: 20100814, end: 20100814

REACTIONS (1)
  - DRUG INEFFECTIVE [None]
